FAERS Safety Report 5624809-1 (Version None)
Quarter: 2008Q1

REPORT INFORMATION
  Report Type: 
  Country: None (occurrence: None)
  Receive Date: 20080213
  Receipt Date: 20080201
  Transmission Date: 20080703
  Serious: Yes (Death)
  Sender: FDA-Public Use
  Company Number: PL-ROCHE-540219

PATIENT
  Age: 69 Year
  Sex: Female
  Weight: 65 kg

DRUGS (5)
  1. CAPECITABINE [Suspect]
     Route: 048
     Dates: start: 20071130, end: 20080104
  2. CAPECITABINE [Suspect]
     Indication: RECTAL CANCER
     Route: 048
     Dates: start: 20071106
  3. FRAGMIN [Concomitant]
     Indication: THROMBOSIS
     Route: 058
     Dates: start: 20070723, end: 20080104
  4. FENTANYL [Concomitant]
     Indication: PAIN
     Dosage: DRUG NAME REPORTED AS FENTANYL TTS TDD REPORTED AS 25MCG/4
     Dates: start: 20071106, end: 20080104
  5. FENTANYL [Concomitant]
     Dosage: TDD REPORTED AS 25 UG/4 DRUG NAME REPORTED AS FENTANYL TTS/FENTANYL
     Dates: start: 20071130, end: 20080104

REACTIONS (1)
  - DISEASE PROGRESSION [None]
